FAERS Safety Report 6249203-4 (Version None)
Quarter: 2009Q2

REPORT INFORMATION
  Report Type: 
  Country: None (occurrence: None)
  Receive Date: 20090629
  Receipt Date: 20090623
  Transmission Date: 20091009
  Serious: Yes (Death, Hospitalization, Other)
  Sender: FDA-Public Use
  Company Number: PHHY2009GB17169

PATIENT
  Sex: Female

DRUGS (19)
  1. CLOZARIL [Suspect]
     Indication: SCHIZOPHRENIA
     Dosage: UNK
     Dates: start: 20021122
  2. TEMAZEPAM [Concomitant]
     Dosage: 20 MG, QD
     Route: 048
     Dates: start: 20090407
  3. OXYCODONE HYDROCHLORIDE [Concomitant]
     Indication: PAIN
     Dosage: 5MG/5ML 4HRLY
     Dates: start: 20090331
  4. OXYCODONE HYDROCHLORIDE [Concomitant]
     Dosage: 10 MG, BID
     Route: 048
     Dates: start: 20090407
  5. PARACETAMOL [Concomitant]
     Indication: PAIN
     Dosage: 500 MG, PRN
     Route: 048
     Dates: start: 20090331
  6. NULYTELY [Concomitant]
     Dosage: 1-2 SACHETS PRN
     Dates: start: 20090331
  7. MIDAZOLAM HCL [Concomitant]
     Indication: AGITATION
     Dosage: UNK
     Dates: start: 20090429
  8. MIDAZOLAM HCL [Concomitant]
     Indication: RESTLESSNESS
  9. MORPHINE [Concomitant]
     Indication: STRESS
     Dosage: 2.5-10MG 2-4 HRLY PRN
     Dates: start: 20090429
  10. POLYCAL [Concomitant]
     Dosage: 800 G, UNK
     Dates: start: 20090428
  11. NYSTATIN [Concomitant]
     Dosage: 30 ML, UNK
     Dates: start: 20090427
  12. AMOXICILLIN AND CLAVULANATE POTASSIUM [Concomitant]
     Dosage: 1 DF, TID
     Dates: start: 20090416
  13. AMISULPRIDE [Concomitant]
     Dosage: 200 MG, BID
  14. HYOSCINE HBR HYT [Concomitant]
     Dosage: UNK
     Dates: start: 20090409
  15. EPILIM CHRONO [Concomitant]
     Dosage: 200 MG, BID
     Dates: start: 20090409
  16. CO-DANTHRAMER [Concomitant]
     Dosage: 2 DF, BID
     Dates: start: 20090407
  17. DIAZEPAM [Concomitant]
     Dosage: 5 MG, PRN
     Dates: start: 20090401
  18. SODIUM PICOSULFATE [Concomitant]
     Indication: CONSTIPATION
     Dosage: 1-4 CAPSULE PRN
     Dates: start: 20090331
  19. RADIOTHERAPY [Suspect]

REACTIONS (13)
  - BLOOD ALBUMIN DECREASED [None]
  - BLOOD CREATININE INCREASED [None]
  - CERVIX CARCINOMA [None]
  - CERVIX DISORDER [None]
  - HAEMOGLOBIN DECREASED [None]
  - HYDRONEPHROSIS [None]
  - METASTASES TO BONE [None]
  - NEUROPATHY PERIPHERAL [None]
  - NEUTROPHIL COUNT INCREASED [None]
  - PLATELET COUNT INCREASED [None]
  - SQUAMOUS CELL CARCINOMA [None]
  - VAGINAL HAEMORRHAGE [None]
  - WHITE BLOOD CELL COUNT INCREASED [None]
